FAERS Safety Report 5274212-1 (Version None)
Quarter: 2007Q1

REPORT INFORMATION
  Report Type: 
  Country: None (occurrence: None)
  Receive Date: 20070323
  Receipt Date: 20070316
  Transmission Date: 20070707
  Serious: Yes (Death)
  Sender: FDA-Public Use
  Company Number: US-ROXANE LABORATORIES, INC-2007-DE-01624GD

PATIENT
  Age: 77 Year
  Sex: Female

DRUGS (9)
  1. MORPHINE [Suspect]
     Indication: DYSPNOEA
     Route: 060
  2. MORPHINE [Suspect]
     Route: 048
  3. DIGOXIN [Suspect]
  4. FUROSEMIDE [Concomitant]
  5. METOLAZONE [Concomitant]
  6. POTASSIUM ACETATE [Concomitant]
  7. SPIRONOLACTONE [Concomitant]
  8. WARFARIN SODIUM [Concomitant]
  9. OXYGEN [Concomitant]

REACTIONS (2)
  - ACUTE PULMONARY OEDEMA [None]
  - DELUSION OF REPLACEMENT [None]
